FAERS Safety Report 6192737-1 (Version None)
Quarter: 2009Q2

REPORT INFORMATION
  Report Type: 
  Country: None (occurrence: None)
  Receive Date: 20090518
  Receipt Date: 20090513
  Transmission Date: 20091009
  Serious: Yes (Hospitalization)
  Sender: FDA-Public Use
  Company Number: US-BRISTOL-MYERS SQUIBB COMPANY-14623748

PATIENT
  Age: 51 Year
  Sex: Male
  Weight: 89 kg

DRUGS (6)
  1. CISPLATIN [Suspect]
     Indication: TRANSITIONAL CELL CARCINOMA
     Dosage: RECENT INFUSION ON 04MAR09,CYCLE-6
     Route: 042
     Dates: start: 20081006, end: 20090304
  2. CETUXIMAB [Suspect]
     Indication: TRANSITIONAL CELL CARCINOMA
     Dosage: , THERAPY ONGOING
     Route: 042
     Dates: start: 20081006
  3. GEMCITABINE [Suspect]
     Indication: TRANSITIONAL CELL CARCINOMA
     Dosage: RECENT INFUSION ON 04MAR09,CYCLE-6
     Route: 042
     Dates: start: 20081006, end: 20090304
  4. ENOXAPARIN SODIUM [Concomitant]
     Route: 058
  5. LORATADINE [Concomitant]
     Route: 048
  6. MINOCYCLINE HCL [Concomitant]
     Route: 048

REACTIONS (1)
  - PULMONARY EMBOLISM [None]
